FAERS Safety Report 13638019 (Version 1)
Quarter: 2017Q2

REPORT INFORMATION
  Report Type: Spontaneous
  Country: FI (occurrence: FI)
  Receive Date: 20170609
  Receipt Date: 20170609
  Transmission Date: 20170830
  Serious: Yes (Life-Threatening)
  Sender: FDA-Public Use
  Company Number: FI-TEVA-774503ISR

PATIENT
  Age: 78 Year
  Sex: Female

DRUGS (15)
  1. DIVISUN [Concomitant]
     Dosage: 800 IU (INTERNATIONAL UNIT) DAILY;
     Route: 048
     Dates: start: 20130201
  2. METOPROLOL TARTRATE. [Concomitant]
     Active Substance: METOPROLOL TARTRATE
     Dosage: 190 MILLIGRAM DAILY;
     Route: 048
     Dates: start: 20130201
  3. MAREVAN FORTE [Interacting]
     Active Substance: WARFARIN SODIUM
     Route: 048
     Dates: start: 2006
  4. CIPROFLIXACIN RATIOPHARM [Suspect]
     Active Substance: CIPROFLOXACIN
     Dosage: 1000 MILLIGRAM DAILY;
     Route: 048
     Dates: start: 20161220, end: 20171227
  5. SOMAC [Concomitant]
     Active Substance: PANTOPRAZOLE SODIUM
     Dosage: 40 MILLIGRAM DAILY;
     Route: 048
     Dates: start: 20170104
  6. NITROGLYCERIN ORION [Concomitant]
     Dosage: SUBLINGUAL TABLET
     Dates: start: 20160909
  7. THYROXIN [Concomitant]
     Active Substance: LEVOTHYROXINE
     Route: 048
     Dates: start: 20151217
  8. FURESIS [Concomitant]
     Active Substance: FUROSEMIDE
     Dosage: 40 MILLIGRAM DAILY;
     Route: 048
     Dates: start: 20160406
  9. PLENDIL [Concomitant]
     Active Substance: FELODIPINE
     Dosage: 2.5 MILLIGRAM DAILY;
     Route: 048
     Dates: start: 20151112
  10. DIOVAN COMP [Concomitant]
     Active Substance: HYDROCHLOROTHIAZIDE\VALSARTAN
     Dosage: 1 DF/DAY
     Route: 048
     Dates: start: 20130201
  11. PARA-TABS [Concomitant]
     Active Substance: ACETAMINOPHEN
     Route: 048
     Dates: start: 20130108
  12. ORMOX [Concomitant]
     Dosage: 40 MILLIGRAM DAILY;
     Route: 048
     Dates: start: 20151112
  13. HYDREX SEMI [Concomitant]
     Dosage: 12.5 MILLIGRAM DAILY;
     Route: 048
     Dates: start: 20130201
  14. VAGIFEM [Concomitant]
     Active Substance: ESTRADIOL
     Dosage: VAGINAL TABLET
     Dates: start: 20130201
  15. OMEPRAZOL RATIOPHARM [Concomitant]
     Active Substance: OMEPRAZOLE
     Dosage: GASTRO-RESISTANT CAPSULE
     Route: 048
     Dates: start: 20141212

REACTIONS (4)
  - International normalised ratio increased [Recovered/Resolved]
  - Increased tendency to bruise [Recovered/Resolved]
  - Drug interaction [Recovered/Resolved]
  - Melaena [Recovered/Resolved]

NARRATIVE: CASE EVENT DATE: 201701
